FAERS Safety Report 25350663 (Version 1)
Quarter: 2025Q2

REPORT INFORMATION
  Report Type: Report from Study
  Country: CA (occurrence: CA)
  Receive Date: 20250523
  Receipt Date: 20250523
  Transmission Date: 20250717
  Serious: Yes (Hospitalization)
  Sender: ABBVIE
  Company Number: CA-ABBVIE-6293830

PATIENT
  Age: 68 Year
  Sex: Male

DRUGS (2)
  1. RINVOQ [Suspect]
     Active Substance: UPADACITINIB
     Indication: Ankylosing spondylitis
     Dosage: FROM STRENGTH 15MG
     Route: 048
  2. VANCOMYCIN [Concomitant]
     Active Substance: VANCOMYCIN
     Indication: Product used for unknown indication

REACTIONS (20)
  - Malaise [Recovered/Resolved]
  - C-reactive protein increased [Unknown]
  - Blood sodium decreased [Unknown]
  - Nausea [Recovered/Resolved]
  - Vomiting [Recovered/Resolved]
  - Asthenia [Recovered/Resolved]
  - Headache [Recovered/Resolved]
  - Hyperhidrosis [Recovered/Resolved]
  - Pallor [Recovered/Resolved]
  - Pyrexia [Unknown]
  - Sciatica [Recovered/Resolved]
  - Gastroenteritis [Recovered/Resolved]
  - Neutrophil count increased [Unknown]
  - Oesophageal mass [Unknown]
  - Diarrhoea [Recovered/Resolved]
  - Clostridium difficile colitis [Recovered/Resolved]
  - Haemoglobin decreased [Unknown]
  - Leukocytosis [Unknown]
  - Colitis [Unknown]
  - Troponin increased [Unknown]

NARRATIVE: CASE EVENT DATE: 20240401
